FAERS Safety Report 8604715 (Version 3)
Quarter: 2012Q4

REPORT INFORMATION
  Report Type: 
  Country: TR (occurrence: TR)
  Receive Date: 20120608
  Receipt Date: 20120927
  Transmission Date: 20130627
  Serious: Yes (Hospitalization, Other)
  Sender: FDA-Public Use
  Company Number: TR-JNJFOC-20120601036

PATIENT
  Age: 56 None
  Sex: Male

DRUGS (3)
  1. REMICADE [Suspect]
     Indication: COLITIS ULCERATIVE
     Route: 042
     Dates: start: 20120313
  2. REMICADE [Suspect]
     Indication: COLITIS ULCERATIVE
     Route: 042
     Dates: start: 20120410, end: 20120410
  3. REMICADE [Suspect]
     Indication: COLITIS ULCERATIVE
     Route: 042
     Dates: start: 20120228

REACTIONS (5)
  - Intestinal operation [Recovering/Resolving]
  - Colon operation [Recovered/Resolved]
  - Intestinal fistula [Recovering/Resolving]
  - Drug ineffective [Unknown]
  - X-ray abnormal [Unknown]
